FAERS Safety Report 10347246 (Version 1)
Quarter: 2014Q3

REPORT INFORMATION
  Report Type: Spontaneous
  Country: US (occurrence: US)
  Receive Date: 20140729
  Receipt Date: 20140729
  Transmission Date: 20150326
  Serious: Yes (Hospitalization)
  Sender: FDA-Public Use
  Company Number: US-SA-2014SA098245

PATIENT
  Age: 66 Year
  Sex: Female

DRUGS (2)
  1. LANTUS SOLOSTAR [Suspect]
     Active Substance: INSULIN GLARGINE
     Indication: TYPE 2 DIABETES MELLITUS
     Dosage: SLIDING SCALE, USING LANTUS FROM 20-25 YEARS
     Route: 065
  2. SOLOSTAR [Concomitant]
     Active Substance: DEVICE

REACTIONS (5)
  - Fatigue [Unknown]
  - Aphonia [Unknown]
  - Cardiac flutter [Unknown]
  - Thrombosis [Unknown]
  - Palpitations [Unknown]
